FAERS Safety Report 6302598-5 (Version None)
Quarter: 2009Q3

REPORT INFORMATION
  Report Type: 
  Country: None (occurrence: None)
  Receive Date: 20090810
  Receipt Date: 20090806
  Transmission Date: 20100115
  Serious: Yes (Hospitalization, Other)
  Sender: FDA-Public Use
  Company Number: GB-ROXANE LABORATORIES, INC.-2009-RO-00789RO

PATIENT
  Age: 24 Year
  Sex: Female

DRUGS (10)
  1. LAMOTRIGINE [Suspect]
     Indication: DEPRESSION
     Dosage: 200 MG
  2. LAMOTRIGINE [Suspect]
     Indication: PSYCHOTIC DISORDER
     Dosage: 4200 MG
  3. RISPERIDONE [Suspect]
     Indication: DEPRESSION
     Dosage: 4 MG
  4. RISPERIDONE [Suspect]
     Indication: PSYCHOTIC DISORDER
  5. MIRTAZAPINE [Suspect]
     Indication: DEPRESSION
     Dosage: 30 MG
  6. MIRTAZAPINE [Suspect]
     Indication: PSYCHOTIC DISORDER
  7. ALCOHOL [Suspect]
     Dosage: 1500 ML
  8. FLUID RESUSCITATION [Concomitant]
     Indication: PANCREATITIS ACUTE
  9. ANALGESIA [Concomitant]
     Indication: PANCREATITIS ACUTE
  10. ANTIEMETICS [Concomitant]
     Indication: PANCREATITIS ACUTE

REACTIONS (4)
  - ALCOHOL ABUSE [None]
  - INTENTIONAL OVERDOSE [None]
  - METABOLIC ACIDOSIS [None]
  - PANCREATITIS ACUTE [None]
